FAERS Safety Report 10032556 (Version 1)
Quarter: 2014Q1

REPORT INFORMATION
  Report Type: Spontaneous
  Country: US (occurrence: US)
  Receive Date: 20140324
  Receipt Date: 20140324
  Transmission Date: 20141002
  Serious: No
  Sender: FDA-Public Use
  Company Number: US-BAYER-2014-044096

PATIENT
  Age: 53 Year
  Sex: Male
  Weight: 69 kg

DRUGS (2)
  1. ALEVE TABLET [Suspect]
     Indication: BACK PAIN
     Dosage: 2 DF, PRN
     Route: 048
  2. ALEVE TABLET [Suspect]
     Indication: NECK PAIN

REACTIONS (1)
  - Extra dose administered [None]
